FAERS Safety Report 5149649-1 (Version None)
Quarter: 2006Q4

REPORT INFORMATION
  Report Type: 
  Country: None (occurrence: None)
  Receive Date: 20061113
  Receipt Date: 20060605
  Transmission Date: 20070319
  Serious: Yes (Hospitalization)
  Sender: FDA-Public Use
  Company Number: AU-ROCHE-450506

PATIENT
  Age: 65 Year
  Sex: Female
  Weight: 58 kg

DRUGS (12)
  1. CAPECITABINE [Suspect]
     Dosage: DAYS 1-14 EVERY THREE WEEKS
     Route: 065
     Dates: start: 20050902
  2. CAPECITABINE [Suspect]
     Route: 065
     Dates: start: 20060512, end: 20060525
  3. BEVACIZUMAB [Suspect]
     Dosage: FREQUENCY AS PER PROTOCOL
     Route: 042
     Dates: start: 20050902
  4. ASPIRIN [Concomitant]
     Indication: PROPHYLAXIS
     Route: 048
     Dates: start: 20050902
  5. UNSPECIFIED DRUG [Concomitant]
     Indication: PROPHYLAXIS
     Route: 048
     Dates: start: 20060707, end: 20060724
  6. COLOXYL WITH SENNA [Concomitant]
     Dosage: TAKEN PM TREATMENT FOR OTHER CHRONIC DISORDER
     Route: 048
  7. LACTULOSE [Concomitant]
     Dosage: TAKEN PM TREATMENT FOR OTHER CHRONIC DISORDER
     Route: 048
     Dates: start: 20060707, end: 20060724
  8. DEXANE [Concomitant]
     Indication: PROPHYLAXIS
     Route: 030
     Dates: start: 20060707
  9. UNSPECIFIED DRUG [Concomitant]
     Dosage: TAKEN PM DRUG REPORTED AS TAMEZEPAM
     Route: 048
     Dates: start: 20060707, end: 20060724
  10. ERGOCALCIFEROL [Concomitant]
     Indication: PROPHYLAXIS
     Route: 048
     Dates: start: 20060724
  11. UNSPECIFIED DRUG [Concomitant]
     Dosage: DRUG REPORTED AS ALEDRONATE
     Route: 048
     Dates: start: 20060724
  12. UNSPECIFIED DRUG [Concomitant]
     Dosage: DRUG REPORTED AS NORSPAN REPORTED FOR TREATMENT OF OTHER CHRONIC DISEASE
     Route: 050
     Dates: start: 20060724

REACTIONS (2)
  - BLOOD CREATININE INCREASED [None]
  - PROTEINURIA [None]
